FAERS Safety Report 24075207 (Version 2)
Quarter: 2024Q3

REPORT INFORMATION
  Report Type: Spontaneous
  Country: FR (occurrence: FR)
  Receive Date: 20240710
  Receipt Date: 20240723
  Transmission Date: 20241017
  Serious: Yes (Other)
  Sender: VERTEX
  Company Number: FR-VERTEX PHARMACEUTICALS-2024-011240

PATIENT

DRUGS (4)
  1. ELEXACAFTOR\IVACAFTOR\TEZACAFTOR [Suspect]
     Active Substance: ELEXACAFTOR\IVACAFTOR\TEZACAFTOR
     Indication: Cystic fibrosis
     Dosage: LESS THAN 14 KG PATIENTS, ELEXACAFTOR 80 MG, TEZACAFTOR 40 MG, IVACAFTOR 60 MG, ONCE DAILY
     Route: 048
  2. ELEXACAFTOR\IVACAFTOR\TEZACAFTOR [Suspect]
     Active Substance: ELEXACAFTOR\IVACAFTOR\TEZACAFTOR
     Dosage: 14 KG OR MORE PATIENTS, ELEXACAFTOR 100 MG, TEZACAFTOR 50 MG, IVACAFTOR 75 MG EVERY, ONCE DAILY
     Route: 048
  3. KALYDECO [Suspect]
     Active Substance: IVACAFTOR
     Indication: Cystic fibrosis
     Dosage: IVACAFTOR 59.5 MG IN THE EVENING
     Route: 048
  4. KALYDECO [Suspect]
     Active Substance: IVACAFTOR
     Dosage: IVACAFTOR 75 MG IN THE EVENING
     Route: 048

REACTIONS (12)
  - Suicidal ideation [Not Recovered/Not Resolved]
  - Initial insomnia [Unknown]
  - Middle insomnia [Unknown]
  - Nightmare [Unknown]
  - Parasomnia [Recovered/Resolved]
  - Somnambulism [Recovered/Resolved]
  - Attention deficit hyperactivity disorder [Unknown]
  - Irritability [Unknown]
  - Depressed mood [Not Recovered/Not Resolved]
  - Aggression [Unknown]
  - Defiant behaviour [Recovered/Resolved]
  - Disturbance in attention [Not Recovered/Not Resolved]
